FAERS Safety Report 15308466 (Version 4)
Quarter: 2018Q3

REPORT INFORMATION
  Report Type: Spontaneous
  Country: JP (occurrence: JP)
  Receive Date: 20180822
  Receipt Date: 20180903
  Transmission Date: 20181010
  Serious: Yes (Hospitalization, Disabling, Other)
  Sender: FDA-Public Use
  Company Number: JP-009507513-1704JPN001241J

PATIENT
  Age: 84 Year
  Sex: Female
  Weight: 46 kg

DRUGS (4)
  1. KEYTRUDA [Suspect]
     Active Substance: PEMBROLIZUMAB
     Indication: SQUAMOUS CELL CARCINOMA OF LUNG
     Dosage: 200 MG, Q3W
     Route: 041
     Dates: start: 20170322, end: 20170322
  2. KEYTRUDA [Suspect]
     Active Substance: PEMBROLIZUMAB
     Dosage: 200 MG, Q3W
     Route: 041
     Dates: start: 20170418, end: 20170509
  3. ERYTHROMYCIN. [Suspect]
     Active Substance: ERYTHROMYCIN
     Dosage: UNK
     Route: 065
  4. INFLUENZA HA VACCINE [Suspect]
     Active Substance: INFLUENZA VIRUS VACCINE
     Indication: IMMUNISATION
     Dosage: 0.5 ML, QD
     Route: 051
     Dates: start: 20170502, end: 20170502

REACTIONS (7)
  - Adrenal insufficiency [Not Recovered/Not Resolved]
  - Malaise [Recovered/Resolved]
  - Spinal compression fracture [Recovering/Resolving]
  - Diarrhoea [Recovered/Resolved]
  - Skin exfoliation [Recovered/Resolved]
  - Diarrhoea [Recovered/Resolved]
  - Rash [Recovered/Resolved]

NARRATIVE: CASE EVENT DATE: 20170411
